FAERS Safety Report 5408319-2 (Version None)
Quarter: 2007Q3

REPORT INFORMATION
  Report Type: 
  Country: None (occurrence: None)
  Receive Date: 20070808
  Receipt Date: 20070727
  Transmission Date: 20080115
  Serious: Yes (Other)
  Sender: FDA-Public Use
  Company Number: JP-BRISTOL-MYERS SQUIBB COMPANY-13868427

PATIENT
  Age: 65 Year
  Sex: Male

DRUGS (9)
  1. EFAVIRENZ [Suspect]
     Indication: HIV INFECTION
     Dosage: DOSE WAS REDUCED FROM 400MG-200MG/DAY ON 14 NOV 2006
     Route: 048
     Dates: start: 20020508, end: 20061113
  2. VIRAMUNE [Suspect]
     Indication: HIV INFECTION
     Dosage: DOSE WAS INCREASED FROM 200MG TO 400MG 28NOV06-25DEC06 ORAL AND 28DAYS
     Route: 048
     Dates: start: 20061114, end: 20061127
  3. MAGNESIUM OXIDE [Concomitant]
     Dates: end: 20070228
  4. OCTOCOG ALPHA [Concomitant]
  5. ABACAVIR + LAMIVUDINE [Concomitant]
     Dates: start: 20060606
  6. BROTIZOLAM [Concomitant]
  7. NOVOLIN N [Concomitant]
     Dates: end: 20061114
  8. LORAZEPAM [Concomitant]
     Dates: end: 20061009
  9. PAROXETINE HCL [Concomitant]

REACTIONS (4)
  - ABDOMINAL PAIN [None]
  - DYSGEUSIA [None]
  - INSOMNIA [None]
  - LOSS OF CONSCIOUSNESS [None]
